FAERS Safety Report 5780196-X (Version None)
Quarter: 2008Q2

REPORT INFORMATION
  Report Type: 
  Country: None (occurrence: None)
  Receive Date: 20080620
  Receipt Date: 20080609
  Transmission Date: 20081010
  Serious: Yes (Hospitalization)
  Sender: FDA-Public Use
  Company Number: FR-ROCHE-569686

PATIENT
  Sex: Female

DRUGS (4)
  1. ROCEPHIN [Suspect]
     Indication: ERYSIPELAS
     Dosage: FORM: INJECTABLE SOLUTION.
     Route: 042
     Dates: start: 20080321, end: 20080327
  2. AUGMENTIN '125' [Suspect]
     Indication: ERYSIPELAS
     Dosage: DRUG NAME: AUGMENTIN 500 MG/62.5 MG A
     Route: 048
     Dates: start: 20080328, end: 20080405
  3. AUGMENTIN '125' [Suspect]
     Dosage: DRUG NAME: AUGMENTIN 500 MG/62.5 MG A
     Route: 048
     Dates: start: 20080328, end: 20080405
  4. LOVENOX [Concomitant]
     Indication: ERYSIPELAS
     Dosage: FORM: INJECTABLE SOLUTION.
     Route: 058
     Dates: start: 20080321, end: 20080327

REACTIONS (1)
  - PHOTOSENSITIVITY REACTION [None]
